FAERS Safety Report 6681489-4 (Version None)
Quarter: 2010Q2

REPORT INFORMATION
  Report Type: 
  Country: None (occurrence: None)
  Receive Date: 20100414
  Receipt Date: 20100407
  Transmission Date: 20101027
  Serious: Yes (Hospitalization, Disabling)
  Sender: FDA-Public Use
  Company Number: US-MERCK-1001USA00983

PATIENT
  Age: 57 Year
  Sex: Female
  Weight: 60 kg

DRUGS (6)
  1. FOSAMAX [Suspect]
     Indication: OSTEOPOROSIS
     Route: 048
     Dates: start: 19980501, end: 20010208
  2. FOSAMAX [Suspect]
     Route: 048
     Dates: start: 20010208, end: 20081201
  3. FOSAMAX [Suspect]
     Route: 048
     Dates: start: 20070101, end: 20090101
  4. ZANTAC [Concomitant]
     Route: 048
  5. PREMARIN [Concomitant]
     Route: 048
  6. VIOXX [Concomitant]
     Route: 048

REACTIONS (25)
  - ADVERSE EVENT [None]
  - ATRIAL FIBRILLATION [None]
  - BLOOD CHOLESTEROL INCREASED [None]
  - BURSITIS [None]
  - FEMUR FRACTURE [None]
  - FRACTURE DELAYED UNION [None]
  - GASTROOESOPHAGEAL REFLUX DISEASE [None]
  - GRIP STRENGTH [None]
  - HYPERSENSITIVITY [None]
  - HYPERTENSION [None]
  - HYPOKALAEMIA [None]
  - HYPOTENSION [None]
  - HYPOTHYROIDISM [None]
  - INTERVERTEBRAL DISC DEGENERATION [None]
  - LACERATION [None]
  - LOW TURNOVER OSTEOPATHY [None]
  - MUSCULOSKELETAL DISCOMFORT [None]
  - MUSCULOSKELETAL PAIN [None]
  - OSTEOPENIA [None]
  - OSTEOPOROSIS [None]
  - PAIN [None]
  - PAIN IN EXTREMITY [None]
  - SCOLIOSIS [None]
  - SEASONAL ALLERGY [None]
  - STRESS FRACTURE [None]
